FAERS Safety Report 9547927 (Version 3)
Quarter: 2014Q1

REPORT INFORMATION
  Report Type: Report from Study
  Country: JP (occurrence: JP)
  Receive Date: 20130924
  Receipt Date: 20140219
  Transmission Date: 20141002
  Serious: Yes (Other)
  Sender: FDA-Public Use
  Company Number: JP-JNJFOC-20130907951

PATIENT
  Age: 61 Year
  Sex: Male

DRUGS (31)
  1. STELARA [Suspect]
     Indication: PUSTULAR PSORIASIS
     Route: 058
     Dates: start: 20111207, end: 20111207
  2. STELARA [Suspect]
     Indication: PUSTULAR PSORIASIS
     Route: 058
     Dates: start: 20110915, end: 20110915
  3. STELARA [Suspect]
     Indication: PUSTULAR PSORIASIS
     Route: 058
     Dates: start: 20110818, end: 20110818
  4. STELARA [Suspect]
     Indication: PUSTULAR PSORIASIS
     Route: 058
     Dates: start: 20120229, end: 20120229
  5. STELARA [Suspect]
     Indication: PUSTULAR PSORIASIS
     Route: 058
     Dates: start: 20120620, end: 20120620
  6. STELARA [Suspect]
     Indication: PUSTULAR PSORIASIS
     Route: 058
     Dates: start: 20120913, end: 20120913
  7. STELARA [Suspect]
     Indication: PUSTULAR PSORIASIS
     Route: 058
     Dates: start: 20121206, end: 20121206
  8. STELARA [Suspect]
     Indication: PUSTULAR PSORIASIS
     Route: 058
     Dates: start: 20130228, end: 20130228
  9. MYSER [Suspect]
     Indication: PUSTULAR PSORIASIS
     Route: 061
     Dates: start: 20110315
  10. RHEUMATREX [Suspect]
     Indication: PUSTULAR PSORIASIS
     Route: 048
     Dates: start: 20110329
  11. MAGLAX [Concomitant]
     Indication: CONSTIPATION
     Route: 048
  12. GLYCYRON [Concomitant]
     Indication: CHOLECYSTITIS
     Dosage: 6 DF
     Route: 048
  13. TIGASON [Concomitant]
     Indication: PUSTULAR PSORIASIS
     Route: 048
     Dates: start: 20120202
  14. TIGASON [Concomitant]
     Indication: PUSTULAR PSORIASIS
     Route: 048
     Dates: start: 20100607, end: 20110116
  15. TIGASON [Concomitant]
     Indication: PUSTULAR PSORIASIS
     Route: 048
     Dates: start: 20110117, end: 20110530
  16. TIGASON [Concomitant]
     Indication: PUSTULAR PSORIASIS
     Route: 048
     Dates: start: 20110725, end: 20111207
  17. TIGASON [Concomitant]
     Indication: PUSTULAR PSORIASIS
     Route: 048
     Dates: start: 20111208, end: 20120201
  18. FOLIAMIN [Concomitant]
     Indication: PUSTULAR PSORIASIS
     Route: 048
  19. URSO [Concomitant]
     Indication: CHOLECYSTITIS
     Route: 048
  20. TAKEPRON [Concomitant]
     Indication: GASTROOESOPHAGEAL REFLUX DISEASE
     Route: 048
  21. CEREDIST [Concomitant]
     Indication: MULTIPLE SYSTEM ATROPHY
     Route: 048
  22. ALLEGRA [Concomitant]
     Indication: PUSTULAR PSORIASIS
     Route: 048
  23. RIVOTRIL [Concomitant]
     Indication: PRODUCT USED FOR UNKNOWN INDICATION
     Route: 048
  24. MOBIC [Concomitant]
     Indication: PUSTULAR PSORIASIS
     Route: 048
  25. MUCOSTA [Concomitant]
     Indication: GASTRITIS
     Route: 048
  26. JUVELA N [Concomitant]
     Indication: PRODUCT USED FOR UNKNOWN INDICATION
     Route: 048
  27. LOCOID [Concomitant]
     Indication: PUSTULAR PSORIASIS
     Route: 061
     Dates: start: 20110928
  28. RINDERON-VG [Concomitant]
     Indication: PUSTULAR PSORIASIS
     Route: 061
     Dates: start: 20110928
  29. MINOMYCIN [Concomitant]
     Indication: PEMPHIGOID
     Route: 065
     Dates: start: 20130502
  30. PREDONINE [Concomitant]
     Indication: PEMPHIGOID
     Route: 065
     Dates: start: 20130711
  31. PREDONINE [Concomitant]
     Indication: PEMPHIGOID
     Route: 065
     Dates: start: 20130620, end: 20130710

REACTIONS (6)
  - Tinea versicolour [Recovered/Resolved]
  - Cellulitis [Recovered/Resolved]
  - Cellulitis [Recovered/Resolved]
  - Fall [Recovered/Resolved]
  - Pemphigoid [Recovered/Resolved]
  - Injury [Recovered/Resolved]
